FAERS Safety Report 7279997-0 (Version None)
Quarter: 2011Q1

REPORT INFORMATION
  Report Type: 
  Country: None (occurrence: None)
  Receive Date: 20110208
  Receipt Date: 20110202
  Transmission Date: 20110831
  Serious: Yes (Other)
  Sender: FDA-Public Use
  Company Number: US-B.I. PHARMACEUTICALS,INC./RIDGEFIELD-2011-BP-01931BP

PATIENT
  Age: 74 Year
  Sex: Female

DRUGS (5)
  1. PRADAXA [Suspect]
     Indication: ATRIAL FIBRILLATION
     Dosage: 300 MG
     Dates: start: 20101201
  2. POTASSIUM [Concomitant]
     Indication: PROPHYLAXIS
  3. VITAMIN D [Concomitant]
     Indication: PROPHYLAXIS
  4. SPIRIVA [Suspect]
     Indication: DYSPNOEA
     Dosage: 18 MCG
     Route: 055
  5. ASPIRIN [Concomitant]
     Indication: PROPHYLAXIS

REACTIONS (12)
  - MYOCARDIAL INFARCTION [None]
  - OROPHARYNGEAL PAIN [None]
  - CONTUSION [None]
  - ATRIAL FIBRILLATION [None]
  - THYROID DISORDER [None]
  - MULTIPLE ALLERGIES [None]
  - SLEEP DISORDER [None]
  - ABDOMINAL DISCOMFORT [None]
  - ARTHRITIS [None]
  - HYPERTENSION [None]
  - BLOOD CHOLESTEROL INCREASED [None]
  - CARDIAC DISORDER [None]
